FAERS Safety Report 5904040-2 (Version None)
Quarter: 2008Q3

REPORT INFORMATION
  Report Type: 
  Country: None (occurrence: None)
  Receive Date: 20080919
  Receipt Date: 20080728
  Transmission Date: 20090109
  Serious: No
  Sender: FDA-Public Use
  Company Number: US-WYE-H05291408

PATIENT
  Age: 61 Year
  Sex: Female
  Weight: 74.91 kg

DRUGS (4)
  1. PRISTIQ [Suspect]
     Indication: DEPRESSION
     Dosage: 50 MG 1X PER 1 DAY, ORAL
     Route: 048
     Dates: start: 20080723
  2. ADVAIR DISKUS 100/50 [Concomitant]
  3. TOPROL-XL [Concomitant]
  4. NEXIUM [Concomitant]

REACTIONS (1)
  - MIDDLE INSOMNIA [None]
